FAERS Safety Report 25986303 (Version 4)
Quarter: 2025Q4

REPORT INFORMATION
  Report Type: Report from Study
  Country: EU (occurrence: EU)
  Receive Date: 20251031
  Receipt Date: 20251208
  Transmission Date: 20260117
  Serious: Yes (Other)
  Sender: MYLAN
  Company Number: EU-MYLANLABS-2025M1091478

PATIENT
  Age: 37 Year
  Sex: Female

DRUGS (8)
  1. GLATIRAMER ACETATE [Suspect]
     Active Substance: GLATIRAMER ACETATE
     Indication: Multiple sclerosis
     Dosage: 40 MILLIGRAM, 3XW
     Dates: start: 20250926, end: 20251024
  2. GLATIRAMER ACETATE [Suspect]
     Active Substance: GLATIRAMER ACETATE
     Dosage: 40 MILLIGRAM, 3XW
     Route: 058
     Dates: start: 20250926, end: 20251024
  3. GLATIRAMER ACETATE [Suspect]
     Active Substance: GLATIRAMER ACETATE
     Dosage: 40 MILLIGRAM, 3XW
     Route: 058
     Dates: start: 20250926, end: 20251024
  4. GLATIRAMER ACETATE [Suspect]
     Active Substance: GLATIRAMER ACETATE
     Dosage: 40 MILLIGRAM, 3XW
     Dates: start: 20250926, end: 20251024
  5. DEVICE [Suspect]
     Active Substance: DEVICE
     Indication: Multiple sclerosis
     Dosage: UNK
  6. DEVICE [Suspect]
     Active Substance: DEVICE
     Dosage: UNK
     Route: 058
  7. DEVICE [Suspect]
     Active Substance: DEVICE
     Dosage: UNK
     Route: 058
  8. DEVICE [Suspect]
     Active Substance: DEVICE
     Dosage: UNK

REACTIONS (7)
  - Rash pruritic [Recovering/Resolving]
  - Injection site bruising [Recovering/Resolving]
  - Hypersensitivity [Not Recovered/Not Resolved]
  - Sleep deficit [Unknown]
  - Contusion [Not Recovered/Not Resolved]
  - Product dose omission issue [Unknown]
  - Device use error [Unknown]

NARRATIVE: CASE EVENT DATE: 20251022
